FAERS Safety Report 13355075 (Version 1)
Quarter: 2017Q1

REPORT INFORMATION
  Report Type: Spontaneous
  Country: US (occurrence: US)
  Receive Date: 20170321
  Receipt Date: 20170321
  Transmission Date: 20170429
  Serious: Yes (Other)
  Sender: FDA-Public Use
  Company Number: US-009507513-1703USA008205

PATIENT
  Age: 72 Year
  Sex: Male

DRUGS (3)
  1. VALPROIC ACID. [Interacting]
     Active Substance: VALPROIC ACID
     Dosage: 1000 MG BID
     Route: 048
  2. INVANZ [Suspect]
     Active Substance: ERTAPENEM SODIUM
     Indication: INFECTION
     Dosage: UNK
  3. VALPROIC ACID. [Interacting]
     Active Substance: VALPROIC ACID
     Indication: SEIZURE
     Dosage: UNKNOWN

REACTIONS (2)
  - Drug interaction [Recovered/Resolved]
  - Seizure [Recovered/Resolved]
